FAERS Safety Report 4860329-X (Version None)
Quarter: 2005Q4

REPORT INFORMATION
  Report Type: 
  Country: None (occurrence: None)
  Receive Date: 20051219
  Receipt Date: 20051209
  Transmission Date: 20060501
  Serious: Yes (Death, Other)
  Sender: FDA-Public Use
  Company Number: CA-BRISTOL-MYERS SQUIBB COMPANY-13217708

PATIENT
  Age: 78 Year
  Sex: Female

DRUGS (10)
  1. TEQUIN [Suspect]
  2. ASPIRIN [Concomitant]
     Route: 048
  3. ADALAT [Concomitant]
     Route: 048
  4. DOMPERIDONE [Concomitant]
  5. FUROSEMIDE [Concomitant]
     Route: 048
  6. GLYBURIDE [Concomitant]
     Route: 048
  7. LIPITOR [Concomitant]
     Route: 048
  8. METFORMIN HCL [Concomitant]
  9. RANITIDINE [Concomitant]
     Route: 048
  10. SENNA [Concomitant]
     Route: 048

REACTIONS (1)
  - HYPOGLYCAEMIA [None]
